FAERS Safety Report 14587590 (Version 1)
Quarter: 2018Q1

REPORT INFORMATION
  Report Type: Other
  Country: DE (occurrence: DE)
  Receive Date: 20180301
  Receipt Date: 20180301
  Transmission Date: 20180509
  Serious: Yes (Other)
  Sender: FDA-Public Use
  Company Number: DE-CELLTRION INC.-2018DE018165

PATIENT

DRUGS (2)
  1. REMSIMA [Suspect]
     Active Substance: INFLIXIMAB
     Indication: CROHN^S DISEASE
     Dosage: 200 MG, 6 WEEKS
     Route: 042
     Dates: start: 20160518, end: 20160518
  2. REMSIMA [Suspect]
     Active Substance: INFLIXIMAB
     Dosage: 200 MG, 6 WEEKS
     Route: 042
     Dates: start: 20170710, end: 20170710

REACTIONS (5)
  - Inflammation [Unknown]
  - Arthralgia [Unknown]
  - Inappropriate schedule of drug administration [Unknown]
  - Hypersensitivity [Not Recovered/Not Resolved]
  - Incorrect dose administered [Unknown]

NARRATIVE: CASE EVENT DATE: 20170710
